FAERS Safety Report 7951419-3 (Version None)
Quarter: 2011Q4

REPORT INFORMATION
  Report Type: 
  Country: None (occurrence: None)
  Receive Date: 20111129
  Receipt Date: 20111114
  Transmission Date: 20120403
  Serious: Yes (Hospitalization)
  Sender: FDA-Public Use
  Company Number: 7095438

PATIENT
  Age: 88 Year
  Sex: Female

DRUGS (6)
  1. LEVOTHYROX 350 (LEVOTHYROXINE SODIUM) (LEVOTHYROXINE SODIUM) [Suspect]
     Indication: HYPOTHYROIDISM
     Dosage: ORAL
     Route: 048
  2. PREVISCAN (PENTOXIFYLLINE) (FLUINDIONE) [Suspect]
     Indication: ARRHYTHMIA
     Dates: end: 20110905
  3. FUROSEMIDE [Suspect]
     Indication: CARDIAC FAILURE
     Dosage: 40 MG (40 MG,1 IN 1 D)
     Dates: start: 20110902, end: 20110915
  4. TEMESTA (LORAZEPAM) (LORAZEPAM) [Concomitant]
  5. SOTALEX (SOTALOL HYDROCHLORIDE) (80 MG, TABLET) (SOTALOL) [Concomitant]
  6. HEMIGOXINE NATIVELLE (DIGOXIN) (DIGOXINE) [Concomitant]

REACTIONS (7)
  - HEAD INJURY [None]
  - PELVIC FRACTURE [None]
  - CLUMSINESS [None]
  - DRUG INTERACTION [None]
  - HAEMATOMA [None]
  - ANAEMIA [None]
  - FALL [None]
